FAERS Safety Report 25773390 (Version 2)
Quarter: 2025Q4

REPORT INFORMATION
  Report Type: Spontaneous
  Country: GB (occurrence: GB)
  Receive Date: 20250908
  Receipt Date: 20251008
  Transmission Date: 20260119
  Serious: Yes (Hospitalization)
  Sender: MYLAN
  Company Number: GB-MYLANLABS-2025M1075614

PATIENT
  Sex: Female

DRUGS (16)
  1. TOBI PODHALER [Suspect]
     Active Substance: TOBRAMYCIN
     Indication: Cystic fibrosis
     Dosage: 112 MILLIGRAM, BID (BD ALTERNATE MONTHS)
  2. TOBI PODHALER [Suspect]
     Active Substance: TOBRAMYCIN
     Dosage: 112 MILLIGRAM, BID (BD ALTERNATE MONTHS)
     Route: 055
  3. TOBI PODHALER [Suspect]
     Active Substance: TOBRAMYCIN
     Dosage: 112 MILLIGRAM, BID (BD ALTERNATE MONTHS)
     Route: 055
  4. TOBI PODHALER [Suspect]
     Active Substance: TOBRAMYCIN
     Dosage: 112 MILLIGRAM, BID (BD ALTERNATE MONTHS)
  5. PULMOZYME [Concomitant]
     Active Substance: DORNASE ALFA
     Dosage: 2.5 MILLIGRAM, QD (OD) (NEBULIZED)
  6. PULMOZYME [Concomitant]
     Active Substance: DORNASE ALFA
     Dosage: 2.5 MILLIGRAM, QD (OD) (NEBULIZED)
     Route: 055
  7. PULMOZYME [Concomitant]
     Active Substance: DORNASE ALFA
     Dosage: 2.5 MILLIGRAM, QD (OD) (NEBULIZED)
     Route: 055
  8. PULMOZYME [Concomitant]
     Active Substance: DORNASE ALFA
     Dosage: 2.5 MILLIGRAM, QD (OD) (NEBULIZED)
  9. BRONCHITOL [Concomitant]
     Active Substance: MANNITOL
     Dosage: 400 MILLIGRAM, BID (BD)
  10. BRONCHITOL [Concomitant]
     Active Substance: MANNITOL
     Dosage: 400 MILLIGRAM, BID (BD)
     Route: 055
  11. BRONCHITOL [Concomitant]
     Active Substance: MANNITOL
     Dosage: 400 MILLIGRAM, BID (BD)
     Route: 055
  12. BRONCHITOL [Concomitant]
     Active Substance: MANNITOL
     Dosage: 400 MILLIGRAM, BID (BD)
  13. TEMOCILLIN [Concomitant]
     Active Substance: TEMOCILLIN
     Dosage: 1 GRAM, BID (BD) (NEBULIZED)
  14. TEMOCILLIN [Concomitant]
     Active Substance: TEMOCILLIN
     Dosage: 1 GRAM, BID (BD) (NEBULIZED)
     Route: 055
  15. TEMOCILLIN [Concomitant]
     Active Substance: TEMOCILLIN
     Dosage: 1 GRAM, BID (BD) (NEBULIZED)
     Route: 055
  16. TEMOCILLIN [Concomitant]
     Active Substance: TEMOCILLIN
     Dosage: 1 GRAM, BID (BD) (NEBULIZED)

REACTIONS (3)
  - Hospitalisation [Unknown]
  - Product dose omission issue [Unknown]
  - Product use in unapproved indication [Unknown]
